FAERS Safety Report 26098391 (Version 2)
Quarter: 2025Q4

REPORT INFORMATION
  Report Type: Spontaneous
  Country: EU (occurrence: EU)
  Receive Date: 20251127
  Receipt Date: 20251214
  Transmission Date: 20260117
  Serious: Yes (Death)
  Sender: MERCK SHARP & DOHME LLC
  Company Number: None

PATIENT
  Age: 79 Year
  Sex: Male

DRUGS (1)
  1. KEYTRUDA [Suspect]
     Active Substance: PEMBROLIZUMAB
     Indication: Neoplasm malignant
     Route: 042

REACTIONS (5)
  - Muscular weakness [Fatal]
  - Myositis [Fatal]
  - Myasthenia gravis crisis [Fatal]
  - Thyroiditis [Fatal]
  - Myocarditis [Fatal]

NARRATIVE: CASE EVENT DATE: 20251017
